FAERS Safety Report 9089465 (Version 1)
Quarter: 2013Q1

REPORT INFORMATION
  Report Type: Report from Study
  Country: US (occurrence: US)
  Receive Date: 20130201
  Receipt Date: 20130201
  Transmission Date: 20140127
  Serious: No
  Sender: FDA-Public Use
  Company Number: US-ABBOTT-12P-163-1019501-00

PATIENT
  Sex: Female

DRUGS (5)
  1. HUMIRA [Suspect]
     Indication: RHEUMATOID ARTHRITIS
     Route: 058
  2. ARAVA [Concomitant]
     Indication: RHEUMATOID ARTHRITIS
     Dosage: 10MG DAILY
  3. FOLIC ACID [Concomitant]
     Indication: RHEUMATOID ARTHRITIS
     Dosage: 1MG DAILY
  4. LEXAPRO [Concomitant]
     Indication: DEPRESSION
     Dosage: 20MG DAILY
  5. TRAZODONE [Concomitant]
     Indication: INSOMNIA
     Dosage: 50MG DAILY

REACTIONS (5)
  - Lip swelling [Not Recovered/Not Resolved]
  - Oral discomfort [Not Recovered/Not Resolved]
  - Chapped lips [Not Recovered/Not Resolved]
  - Bronchitis [Not Recovered/Not Resolved]
  - Pneumonia [Not Recovered/Not Resolved]
